FAERS Safety Report 15656335 (Version 1)
Quarter: 2018Q4

REPORT INFORMATION
  Report Type: Report from Study
  Country: US (occurrence: US)
  Receive Date: 20181126
  Receipt Date: 20181126
  Transmission Date: 20190205
  Serious: Yes (Hospitalization)
  Sender: FDA-Public Use
  Company Number: US-JNJFOC-20181116246

PATIENT
  Sex: Female

DRUGS (2)
  1. STELARA [Suspect]
     Active Substance: USTEKINUMAB
     Indication: CROHN^S DISEASE
     Route: 042
  2. STELARA [Suspect]
     Active Substance: USTEKINUMAB
     Indication: CROHN^S DISEASE
     Route: 042
     Dates: start: 20180828, end: 20180828

REACTIONS (5)
  - Urinary tract infection [Unknown]
  - Crohn^s disease [Unknown]
  - Product dose omission [Unknown]
  - International normalised ratio increased [Unknown]
  - Hypotension [Unknown]

NARRATIVE: CASE EVENT DATE: 2018
